FAERS Safety Report 19235548 (Version 1)
Quarter: 2021Q2

REPORT INFORMATION
  Report Type: Spontaneous
  Country: BR (occurrence: BR)
  Receive Date: 20210510
  Receipt Date: 20210510
  Transmission Date: 20210717
  Serious: Yes (Hospitalization, Other)
  Sender: FDA-Public Use
  Company Number: BR-TERSERA THERAPEUTICS LLC-2021TRS001644

PATIENT

DRUGS (5)
  1. ZOLADEX [Suspect]
     Active Substance: GOSERELIN ACETATE
     Dosage: 10.8 MILLIGRAM, EVERY THREE MONTHS
     Route: 058
     Dates: start: 202003
  2. ZOLADEX [Suspect]
     Active Substance: GOSERELIN ACETATE
     Indication: ENDOMETRIOSIS
     Dosage: 10.8MG, MONTHLY
     Route: 058
     Dates: start: 2013, end: 2013
  3. ELANI 28 [Concomitant]
     Indication: PREGNANCY ON CONTRACEPTIVE
     Route: 065
     Dates: end: 2016
  4. ZOLADEX [Suspect]
     Active Substance: GOSERELIN ACETATE
     Dosage: SECOND DOSE, IT REDUCED 710.8MG UNKNOWN
     Route: 058
     Dates: start: 2020
  5. ZOLADEX [Suspect]
     Active Substance: GOSERELIN ACETATE
     Indication: LEIOMYOMA
     Dosage: THE FIRST DOSE MYOMAS DECREASED BY ONLY ONE CENTIMETER10.8MG UNKNOWN
     Route: 058
     Dates: start: 2020

REACTIONS (8)
  - Leiomyoma [Recovered/Resolved]
  - Endometriosis [Recovering/Resolving]
  - Abortion spontaneous [Recovered/Resolved]
  - Uterine enlargement [Recovered/Resolved]
  - Gallbladder disorder [Recovered/Resolved]
  - Immunoglobulins decreased [Not Recovered/Not Resolved]
  - Malaise [Recovered/Resolved]
  - Exposure during pregnancy [Recovered/Resolved]

NARRATIVE: CASE EVENT DATE: 2015
